FAERS Safety Report 9319382 (Version 1)
Quarter: 2013Q2

REPORT INFORMATION
  Report Type: Report from Study
  Country: BR (occurrence: BR)
  Receive Date: 20130530
  Receipt Date: 20130530
  Transmission Date: 20140414
  Serious: Yes (Other)
  Sender: FDA-Public Use
  Company Number: BR-ABBOTT-13P-020-1096396-00

PATIENT
  Sex: Female
  Weight: 82 kg

DRUGS (5)
  1. HUMIRA [Suspect]
     Indication: RHEUMATOID ARTHRITIS
     Route: 058
     Dates: start: 201208
  2. ARCOXIA [Concomitant]
     Indication: INFLAMMATION
     Route: 048
  3. DEFLANIL [Concomitant]
     Indication: INFLAMMATION
     Route: 048
     Dates: start: 201212
  4. ARAVA [Concomitant]
     Indication: RHEUMATOID ARTHRITIS
     Route: 048
  5. VIMOVO [Concomitant]
     Indication: RHEUMATOID ARTHRITIS
     Route: 048
     Dates: start: 201203

REACTIONS (3)
  - Visual acuity reduced [Recovered/Resolved]
  - Cataract [Recovered/Resolved]
  - Pain [Unknown]
